FAERS Safety Report 17970915 (Version 2)
Quarter: 2020Q3

REPORT INFORMATION
  Report Type: Spontaneous
  Country: US (occurrence: US)
  Receive Date: 20200701
  Receipt Date: 20200706
  Transmission Date: 20201103
  Serious: Yes (Other)
  Sender: FDA-Public Use
  Company Number: US-PFIZER INC-2020252620

PATIENT
  Age: 23 Year
  Sex: Female
  Weight: 85.73 kg

DRUGS (8)
  1. LORAZEPAM. [Suspect]
     Active Substance: LORAZEPAM
     Dosage: UNK (INTRAVENOUS AS WELL)
     Route: 042
     Dates: start: 20200412
  2. HALDOL [Suspect]
     Active Substance: HALOPERIDOL
     Dosage: UNK
     Route: 042
     Dates: start: 20200412
  3. LORAZEPAM. [Suspect]
     Active Substance: LORAZEPAM
     Dosage: UNK (2MG EACH TIME)
     Route: 030
     Dates: start: 20200310
  4. HALDOL [Suspect]
     Active Substance: HALOPERIDOL
     Dosage: UNK
     Route: 030
     Dates: start: 20200224
  5. LORAZEPAM. [Suspect]
     Active Substance: LORAZEPAM
     Indication: DEPRESSION
     Dosage: UNK (2 MG BY INJECTION)
     Route: 030
     Dates: start: 20200224
  6. LORAZEPAM. [Suspect]
     Active Substance: LORAZEPAM
     Dosage: UNK (2MG EACH TIME)
     Dates: start: 20200225
  7. HALDOL [Suspect]
     Active Substance: HALOPERIDOL
     Indication: DEPRESSION
     Dosage: UNK (5 MG BY INJECTION)
  8. HALDOL [Suspect]
     Active Substance: HALOPERIDOL
     Dosage: UNK
     Route: 030
     Dates: start: 20200310

REACTIONS (19)
  - Off label use [Unknown]
  - Anosmia [Not Recovered/Not Resolved]
  - Glassy eyes [Not Recovered/Not Resolved]
  - Visual impairment [Unknown]
  - Eye disorder [Unknown]
  - Hypoaesthesia [Not Recovered/Not Resolved]
  - Ageusia [Not Recovered/Not Resolved]
  - Balance disorder [Not Recovered/Not Resolved]
  - White blood cell count decreased [Unknown]
  - Tremor [Unknown]
  - Fatigue [Unknown]
  - Product use in unapproved indication [Unknown]
  - Iron deficiency [Unknown]
  - Loss of personal independence in daily activities [Unknown]
  - Vein disorder [Unknown]
  - Hypovitaminosis [Unknown]
  - Gait disturbance [Not Recovered/Not Resolved]
  - Dystonia [Unknown]
  - Parosmia [Not Recovered/Not Resolved]

NARRATIVE: CASE EVENT DATE: 2020
